FAERS Safety Report 14571584 (Version 1)
Quarter: 2018Q1

REPORT INFORMATION
  Report Type: Spontaneous
  Country: US (occurrence: US)
  Receive Date: 20180226
  Receipt Date: 20180226
  Transmission Date: 20180509
  Serious: No
  Sender: FDA-Public Use
  Company Number: US-PFIZER INC-2018070592

PATIENT
  Age: 49 Year
  Sex: Female
  Weight: 54 kg

DRUGS (1)
  1. ESTRING [Suspect]
     Active Substance: ESTRADIOL
     Indication: GENITAL ATROPHY
     Dosage: SINGLE
     Route: 067
     Dates: start: 20180205, end: 20180216

REACTIONS (4)
  - Drug dispensing error [Unknown]
  - Expired product administered [Unknown]
  - Diarrhoea [Not Recovered/Not Resolved]
  - Abdominal pain upper [Recovering/Resolving]

NARRATIVE: CASE EVENT DATE: 2018
